FAERS Safety Report 6004070-9 (Version None)
Quarter: 2008Q4

REPORT INFORMATION
  Report Type: 
  Country: None (occurrence: None)
  Receive Date: 20081216
  Receipt Date: 20081210
  Transmission Date: 20090506
  Serious: Yes (Other)
  Sender: FDA-Public Use
  Company Number: B0550410A

PATIENT
  Age: 27 Year
  Sex: Male

DRUGS (14)
  1. MYLERAN [Suspect]
     Indication: LYMPHOMA
     Route: 048
     Dates: start: 20060129, end: 20060131
  2. FLUDARA [Suspect]
     Indication: LYMPHOMA
     Dosage: 60MG PER DAY
     Route: 042
     Dates: start: 20060123, end: 20060128
  3. FRESENIUS [Suspect]
     Indication: LYMPHOMA
     Route: 042
     Dates: start: 20060129, end: 20060201
  4. URSO FALK [Concomitant]
     Route: 048
  5. DIFLUCAN [Concomitant]
     Route: 048
  6. SANDIMMUNE [Concomitant]
     Route: 048
  7. FRAGMIN [Concomitant]
     Route: 042
  8. SULFAMETHOXAZOLE AND TRIMETHOPRIM DOUBLE STRENGTH [Concomitant]
     Route: 048
  9. EMGESAN [Concomitant]
     Route: 048
  10. NEUPOGEN [Concomitant]
     Route: 042
  11. LORABID [Concomitant]
     Route: 048
  12. GRANOCYTE [Concomitant]
     Route: 065
  13. GEAVIR [Concomitant]
     Route: 048
  14. PANTOPRAZOLE SODIUM [Concomitant]
     Route: 065

REACTIONS (1)
  - HEARING IMPAIRED [None]
